FAERS Safety Report 16041192 (Version 1)
Quarter: 2019Q1

REPORT INFORMATION
  Report Type: Spontaneous
  Country: US (occurrence: US)
  Receive Date: 20190306
  Receipt Date: 20190306
  Transmission Date: 20190418
  Serious: No
  Sender: FDA-Public Use
  Company Number: US-AKORN PHARMACEUTICALS-2018AKN01680

PATIENT
  Sex: Male
  Weight: 111.9 kg

DRUGS (10)
  1. CLARAVIS [Suspect]
     Active Substance: ISOTRETINOIN
     Dosage: UNK
     Dates: start: 20180727, end: 2018
  2. CLARAVIS [Suspect]
     Active Substance: ISOTRETINOIN
     Dosage: 120 MG, 1X/DAY
     Dates: start: 20180828, end: 2018
  3. MYORISAN [Suspect]
     Active Substance: ISOTRETINOIN
     Dosage: 60 MG, 1X/DAY
     Dates: start: 20180413, end: 2018
  4. MYORISAN [Suspect]
     Active Substance: ISOTRETINOIN
     Dosage: 40 MG, 1X/DAY
     Dates: start: 20180208, end: 20180412
  5. MYORISAN [Suspect]
     Active Substance: ISOTRETINOIN
     Dosage: UNK
     Dates: start: 20180906, end: 2018
  6. MYORISAN [Suspect]
     Active Substance: ISOTRETINOIN
     Dosage: UNK
     Dates: start: 20180313, end: 2018
  7. ISOTRETINOIN (NON-COMPANY) [Suspect]
     Active Substance: ISOTRETINOIN
     Dosage: 120 MG, 1X/DAY
     Dates: start: 20180625, end: 2018
  8. MYORISAN [Suspect]
     Active Substance: ISOTRETINOIN
     Dosage: 120 MG, 1X/DAY
     Dates: start: 20180925, end: 2018
  9. ISOTRETINOIN (NON-COMPANY) [Suspect]
     Active Substance: ISOTRETINOIN
     Dosage: UNK
     Dates: start: 20180417, end: 2018
  10. ISOTRETINOIN (NON-COMPANY) [Suspect]
     Active Substance: ISOTRETINOIN
     Dosage: 80 MG, 1X/DAY
     Dates: start: 20180515, end: 2018

REACTIONS (1)
  - Epistaxis [Unknown]

NARRATIVE: CASE EVENT DATE: 2018
